FAERS Safety Report 17907488 (Version 1)
Quarter: 2020Q2

REPORT INFORMATION
  Report Type: Spontaneous
  Country: NL (occurrence: NL)
  Receive Date: 20200617
  Receipt Date: 20200617
  Transmission Date: 20200714
  Serious: Yes (Other)
  Sender: FDA-Public Use
  Company Number: NL-MYLANLABS-2020M1055958

PATIENT
  Age: 14 Year
  Sex: Female
  Weight: 73 kg

DRUGS (1)
  1. ETHINYLESTRADIOL/LEVONORGESTREL [Suspect]
     Active Substance: ETHINYL ESTRADIOL\LEVONORGESTREL
     Indication: CONTRACEPTION
     Dosage: 1X PER DAG
     Dates: start: 2013, end: 20181208

REACTIONS (10)
  - Blindness transient [Recovered/Resolved]
  - Irritability [Recovered/Resolved]
  - Loss of libido [Recovered/Resolved]
  - Hypercholesterolaemia [Recovered/Resolved]
  - Depressed mood [Recovered/Resolved]
  - Hypertension [Recovered/Resolved]
  - Eye pain [Recovered/Resolved]
  - Migraine [Recovered/Resolved]
  - Fluid retention [Recovered/Resolved]
  - Speech disorder [Recovered/Resolved]

NARRATIVE: CASE EVENT DATE: 20130501
